FAERS Safety Report 4986380-7 (Version None)
Quarter: 2006Q2

REPORT INFORMATION
  Report Type: 
  Country: None (occurrence: None)
  Receive Date: 20060428
  Receipt Date: 20060426
  Transmission Date: 20061013
  Serious: Yes (Death, Life-Threatening)
  Sender: FDA-Public Use
  Company Number: FR-GLAXOSMITHKLINE-B0421668A

PATIENT
  Age: 68 Year
  Sex: Male

DRUGS (5)
  1. AUGMENTIN '125' [Suspect]
     Indication: BRONCHOPNEUMONIA
     Dosage: 1G SINGLE DOSE
     Route: 048
     Dates: start: 20060214, end: 20060214
  2. CLAMOXYL [Suspect]
     Indication: BRONCHOPNEUMONIA
     Dosage: 1G SINGLE DOSE
     Route: 042
     Dates: start: 20060214, end: 20060215
  3. OFLOCET [Suspect]
     Indication: BRONCHOPNEUMONIA
     Dosage: 200MG SINGLE DOSE
     Route: 048
     Dates: start: 20060214, end: 20060214
  4. CIFLOX [Suspect]
     Indication: BRONCHOPNEUMONIA
     Dosage: 400MG SINGLE DOSE
     Route: 042
     Dates: start: 20060214, end: 20060215
  5. PYOSTACINE [Concomitant]
     Route: 065
     Dates: start: 20060215

REACTIONS (5)
  - GENERALISED ERYTHEMA [None]
  - MUCOUS MEMBRANE DISORDER [None]
  - SKIN DISORDER [None]
  - TOXIC EPIDERMAL NECROLYSIS [None]
  - TOXIC SKIN ERUPTION [None]
